FAERS Safety Report 5994577-2 (Version None)
Quarter: 2008Q4

REPORT INFORMATION
  Report Type: 
  Country: None (occurrence: None)
  Receive Date: 20081212
  Receipt Date: 20080909
  Transmission Date: 20090506
  Serious: Yes (Hospitalization, Other)
  Sender: FDA-Public Use
  Company Number: US-ABBOTT-08P-163-0475437-00

PATIENT
  Age: 61 Year
  Sex: Male
  Weight: 80.358 kg

DRUGS (5)
  1. HUMIRA [Suspect]
     Indication: COLITIS ULCERATIVE
     Route: 050
     Dates: start: 20080801
  2. PREDNISONE TAB [Concomitant]
     Indication: INFLAMMATION
     Route: 048
  3. ERGOCALCIFEROL [Concomitant]
     Indication: VITAMIN SUPPLEMENTATION
     Route: 048
  4. AZATHIOPRINE [Concomitant]
     Indication: INFLAMMATION
     Route: 048
  5. INFLAMMATION BLOCKER [Concomitant]
     Indication: INFLAMMATION

REACTIONS (2)
  - BODY TINEA [None]
  - LOCALISED INFECTION [None]
